FAERS Safety Report 5466738-2 (Version None)
Quarter: 2007Q3

REPORT INFORMATION
  Report Type: 
  Country: None (occurrence: None)
  Receive Date: 20070920
  Receipt Date: 20070913
  Transmission Date: 20080115
  Serious: Yes (Other)
  Sender: FDA-Public Use
  Company Number: 2007SP017304

PATIENT
  Age: 50 Year
  Sex: Male

DRUGS (2)
  1. PEGETRON (PEGINTERFERON ALFA-2B W/RIBAVIRIN) (PEGYLATED INTERFERON ALF [Suspect]
     Indication: DRUG USE FOR UNKNOWN INDICATION
     Dosage: 100 MCG; ;SC; 1000 MG; ;PO
     Route: 058
     Dates: start: 20070111, end: 20070122
  2. PEGETRON (PEGINTERFERON ALFA-2B W/RIBAVIRIN) (PEGYLATED INTERFERON ALF [Suspect]
     Indication: DRUG USE FOR UNKNOWN INDICATION
     Dosage: 100 MCG; ;SC; 1000 MG; ;PO
     Route: 058
     Dates: start: 20070111, end: 20070122

REACTIONS (1)
  - OESOPHAGEAL CARCINOMA [None]
